FAERS Safety Report 17399539 (Version 1)
Quarter: 2020Q1

REPORT INFORMATION
  Report Type: Spontaneous
  Country: PL (occurrence: PL)
  Receive Date: 20200211
  Receipt Date: 20200211
  Transmission Date: 20200409
  Serious: Yes (Other)
  Sender: FDA-Public Use
  Company Number: PL-SUN PHARMACEUTICAL INDUSTRIES LTD-2020RR-236148

PATIENT
  Age: 56 Year
  Sex: Female

DRUGS (7)
  1. PREGABALIN. [Suspect]
     Active Substance: PREGABALIN
     Indication: ENDOMETRIAL ADENOCARCINOMA
     Dosage: 150 MG, BID
     Route: 065
  2. OXYCODONE [Suspect]
     Active Substance: OXYCODONE
     Indication: ENDOMETRIAL ADENOCARCINOMA
     Dosage: 5 MG, BID
     Route: 065
  3. OXYCODONE [Suspect]
     Active Substance: OXYCODONE
     Dosage: 5 MG, BID
     Route: 065
  4. OXYCODONE [Suspect]
     Active Substance: OXYCODONE
     Dosage: 10 MG, BID
     Route: 065
  5. PREGABALIN. [Suspect]
     Active Substance: PREGABALIN
     Dosage: 225 MG, QD
     Route: 065
  6. PREGABALIN. [Suspect]
     Active Substance: PREGABALIN
     Dosage: 450 MG, QD (150 MG IN MORNING AND 300 MG IN EVENING)
     Route: 065
  7. OXYCODONE [Suspect]
     Active Substance: OXYCODONE
     Dosage: 5 MG, QD
     Route: 065

REACTIONS (19)
  - Depressed mood [Recovering/Resolving]
  - Sleep disorder [Recovering/Resolving]
  - Paraesthesia [Recovering/Resolving]
  - Depression [Recovering/Resolving]
  - Decreased appetite [Recovering/Resolving]
  - Hypoaesthesia [Unknown]
  - Electromyogram abnormal [Unknown]
  - Off label use [Unknown]
  - Nerve injury [Unknown]
  - Pain in extremity [Recovering/Resolving]
  - Hyporeflexia [Unknown]
  - Sensory disturbance [Unknown]
  - Muscular weakness [Recovering/Resolving]
  - Somnolence [Unknown]
  - Peripheral swelling [Recovering/Resolving]
  - Dysaesthesia [Recovering/Resolving]
  - Product use in unapproved indication [Unknown]
  - Joint dislocation [Unknown]
  - Peripheral sensory neuropathy [Unknown]

NARRATIVE: CASE EVENT DATE: 201807
